FAERS Safety Report 14515286 (Version 7)
Quarter: 2018Q2

REPORT INFORMATION
  Report Type: Spontaneous
  Country: IT (occurrence: IT)
  Receive Date: 20180210
  Receipt Date: 20180508
  Transmission Date: 20180711
  Serious: Yes (Hospitalization)
  Sender: FDA-Public Use
  Company Number: IT-AMGEN-ITASP2018016381

PATIENT
  Age: 65 Year
  Sex: Male
  Weight: 77 kg

DRUGS (5)
  1. REVLIMID [Suspect]
     Active Substance: LENALIDOMIDE
     Indication: PLASMA CELL MYELOMA
     Dosage: 25 MG, UNK
     Route: 048
     Dates: start: 20180104, end: 20180124
  2. KYPROLIS [Suspect]
     Active Substance: CARFILZOMIB
     Indication: PLASMA CELL MYELOMA
     Dosage: 50 MG, PER CYCLICAL (28 DAYS)
     Route: 042
     Dates: start: 20180104, end: 20180119
  3. DEXAMETHASONE. [Concomitant]
     Active Substance: DEXAMETHASONE
     Indication: PLASMA CELL MYELOMA
     Dosage: 40 MG, 3 DAYS
     Dates: start: 20180104, end: 20180126
  4. CARDIOASPIRIN [Concomitant]
     Active Substance: ASPIRIN
     Dosage: UNK
  5. TRIMETON [Concomitant]
     Active Substance: CHLORPHENIRAMINE MALEATE
     Dosage: UNK

REACTIONS (5)
  - Toxic epidermal necrolysis [Not Recovered/Not Resolved]
  - Urinary tract infection [Recovered/Resolved]
  - Stevens-Johnson syndrome [Recovered/Resolved]
  - Productive cough [Unknown]
  - Acquired phimosis [Recovered/Resolved]

NARRATIVE: CASE EVENT DATE: 20180125
